FAERS Safety Report 7353063-8 (Version None)
Quarter: 2011Q1

REPORT INFORMATION
  Report Type: 
  Country: None (occurrence: None)
  Receive Date: 20110315
  Receipt Date: 20110308
  Transmission Date: 20110831
  Serious: Yes (Hospitalization)
  Sender: FDA-Public Use
  Company Number: B0700580A

PATIENT
  Age: 45 Year
  Sex: Female

DRUGS (7)
  1. ZOCOR [Concomitant]
  2. BUMEX [Concomitant]
  3. ZESTRIL [Concomitant]
  4. POTASSIUM [Concomitant]
  5. NORVASC [Concomitant]
  6. PLAVIX [Concomitant]
  7. AVANDIA [Suspect]
     Indication: DIABETES MELLITUS
     Dosage: 4MG PER DAY
     Route: 048
     Dates: end: 20030816

REACTIONS (3)
  - CORONARY ARTERY DISEASE [None]
  - CARDIAC FAILURE CONGESTIVE [None]
  - TRANSIENT ISCHAEMIC ATTACK [None]
